FAERS Safety Report 16023115 (Version 2)
Quarter: 2019Q1

REPORT INFORMATION
  Report Type: Spontaneous
  Country: US (occurrence: US)
  Receive Date: 20190301
  Receipt Date: 20190306
  Transmission Date: 20190418
  Serious: No
  Sender: FDA-Public Use
  Company Number: US-PFIZER INC-2019087241

PATIENT
  Age: 82 Year
  Sex: Female

DRUGS (1)
  1. PREMARIN [Suspect]
     Active Substance: ESTROGENS, CONJUGATED
     Indication: CYSTITIS
     Dosage: UNK

REACTIONS (6)
  - Malaise [Unknown]
  - Product preparation error [Unknown]
  - Product complaint [Unknown]
  - Tinnitus [Unknown]
  - Product use in unapproved indication [Unknown]
  - Hypoacusis [Unknown]
